APPROVED DRUG PRODUCT: QUINAPRIL HYDROCHLORIDE
Active Ingredient: QUINAPRIL HYDROCHLORIDE
Strength: EQ 20MG BASE
Dosage Form/Route: TABLET;ORAL
Application: A090800 | Product #003
Applicant: SUN PHARMACEUTICAL INDUSTRIES LTD
Approved: Jun 18, 2009 | RLD: No | RS: No | Type: DISCN